FAERS Safety Report 18339340 (Version 1)
Quarter: 2020Q4

REPORT INFORMATION
  Report Type: Spontaneous
  Country: US (occurrence: US)
  Receive Date: 20201002
  Receipt Date: 20201002
  Transmission Date: 20210113
  Serious: No
  Sender: FDA-Public Use
  Company Number: None

PATIENT
  Age: 56 Year
  Sex: Female

DRUGS (1)
  1. COMBIPATCH [Suspect]
     Active Substance: ESTRADIOL\NORETHINDRONE ACETATE
     Dosage: ?          OTHER FREQUENCY:TWICE WEEKLY;?
     Route: 062
     Dates: start: 20200521

REACTIONS (6)
  - Condition aggravated [None]
  - Drug ineffective [None]
  - Paraesthesia [None]
  - Taste disorder [None]
  - Back pain [None]
  - Appetite disorder [None]

NARRATIVE: CASE EVENT DATE: 20201002
